FAERS Safety Report 8283017-9 (Version None)
Quarter: 2012Q2

REPORT INFORMATION
  Report Type: 
  Country: None (occurrence: None)
  Receive Date: 20120413
  Receipt Date: 20120316
  Transmission Date: 20120825
  Serious: Yes (Other)
  Sender: FDA-Public Use
  Company Number: US-ROCHE-1001389

PATIENT
  Sex: Female
  Weight: 87.168 kg

DRUGS (7)
  1. TRIAMTERENE AND HYDROCHLOROTHIAZIDE [Concomitant]
     Indication: OEDEMA
     Dosage: 35MG/25MG
     Route: 048
  2. XELODA [Suspect]
     Indication: PRODUCT USED FOR UNKNOWN INDICATION
     Dosage: 500 MG 5 TABLEST BID.
     Route: 048
     Dates: start: 20110918
  3. HYDROCODONE [Concomitant]
  4. XELODA [Suspect]
     Route: 048
     Dates: start: 20110912
  5. XELODA [Suspect]
     Route: 048
     Dates: start: 20110918
  6. VITAMINS WITH IRON [Concomitant]
  7. LORAZEPAM [Concomitant]

REACTIONS (8)
  - BREAST PAIN [None]
  - CONFUSIONAL STATE [None]
  - SWELLING [None]
  - BONE PAIN [None]
  - HEADACHE [None]
  - FATIGUE [None]
  - ABDOMINAL DISCOMFORT [None]
  - ILL-DEFINED DISORDER [None]
